FAERS Safety Report 5526704-5 (Version None)
Quarter: 2007Q4

REPORT INFORMATION
  Report Type: 
  Country: None (occurrence: None)
  Receive Date: 20071127
  Receipt Date: 20071115
  Transmission Date: 20080405
  Serious: Yes (Death)
  Sender: FDA-Public Use
  Company Number: US-PURDUE-USA_2007_0030291

PATIENT
  Age: 21 Year
  Sex: Female

DRUGS (4)
  1. OXYCONTIN [Suspect]
     Indication: DRUG ABUSE
  2. METHADONE [Suspect]
     Indication: DRUG ABUSE
  3. FENTANYL [Suspect]
     Indication: DRUG ABUSE
  4. METHAMPHETAMINE HYDROCHLORIDE [Suspect]
     Indication: DRUG ABUSE

REACTIONS (3)
  - CARDIAC FAILURE [None]
  - DRUG TOXICITY [None]
  - SUBSTANCE ABUSE [None]
